FAERS Safety Report 5304162-3 (Version None)
Quarter: 2007Q2

REPORT INFORMATION
  Report Type: 
  Country: None (occurrence: None)
  Receive Date: 20070423
  Receipt Date: 20070410
  Transmission Date: 20071010
  Serious: Yes (Other)
  Sender: FDA-Public Use
  Company Number: PHBS2007TW00994

PATIENT
  Age: 60 Year
  Sex: Female

DRUGS (1)
  1. VALSARTAN AND HYDROCHLOROTHIAZIDE [Suspect]
     Route: 048
     Dates: start: 20060728

REACTIONS (3)
  - ABDOMINAL DISCOMFORT [None]
  - ASTHMA [None]
  - HEPATIC STEATOSIS [None]
